FAERS Safety Report 7627467-X (Version None)
Quarter: 2011Q3

REPORT INFORMATION
  Report Type: 
  Country: None (occurrence: None)
  Receive Date: 20110721
  Receipt Date: 20110708
  Transmission Date: 20111222
  Serious: Yes (Other)
  Sender: FDA-Public Use
  Company Number: US-CELGENEUS-163-21880-10092278

PATIENT
  Sex: Female

DRUGS (1)
  1. REVLIMID [Suspect]
     Indication: MULTIPLE MYELOMA
     Dosage: 25 MILLIGRAM
     Route: 048
     Dates: start: 20100810, end: 20101101

REACTIONS (4)
  - INFECTION PARASITIC [None]
  - BONE LESION [None]
  - PATHOLOGICAL FRACTURE [None]
  - HERPES ZOSTER [None]
